FAERS Safety Report 9096733 (Version 2)
Quarter: 2013Q1

REPORT INFORMATION
  Report Type: Spontaneous
  Country: KW (occurrence: None)
  Receive Date: 20130124
  Receipt Date: 20130206
  Transmission Date: 20140127
  Serious: Yes (Other)
  Sender: FDA-Public Use
  Company Number: AUR-APL-2013-00849

PATIENT
  Age: 57 Year
  Sex: Female

DRUGS (2)
  1. PERINDOPRIL [Suspect]
     Indication: BLOOD PRESSURE
     Dosage: STOPPED
  2. VERAPAMIL SR [Suspect]
     Indication: BLOOD PRESSURE
     Dosage: STOPPED

REACTIONS (5)
  - Syncope [None]
  - Fatigue [None]
  - Nodal arrhythmia [None]
  - Blood creatinine increased [None]
  - Blood potassium increased [None]
